FAERS Safety Report 18853545 (Version 1)
Quarter: 2021Q1

REPORT INFORMATION
  Report Type: Spontaneous
  Country: CA (occurrence: CA)
  Receive Date: 20210205
  Receipt Date: 20210205
  Transmission Date: 20210420
  Serious: Yes (Other)
  Sender: FDA-Public Use
  Company Number: CA-AKCEA THERAPEUTICS-2020IS001372

PATIENT
  Age: 72 Year
  Sex: Female
  Weight: 61.64 kg

DRUGS (7)
  1. TEGSEDI [Suspect]
     Active Substance: INOTERSEN SODIUM
     Indication: HEREDITARY NEUROPATHIC AMYLOIDOSIS
     Route: 058
     Dates: start: 20200811, end: 202010
  2. ROSUVASTATIN. [Concomitant]
     Active Substance: ROSUVASTATIN
  3. CLOPIDOGREL [Concomitant]
     Active Substance: CLOPIDOGREL BISULFATE
  4. TEGSEDI [Suspect]
     Active Substance: INOTERSEN SODIUM
     Route: 058
     Dates: end: 202011
  5. ISSD (INTEGRATED SYRINGE SAFETY DEVICE) [Suspect]
     Active Substance: DEVICE
  6. TELMISARTAN. [Concomitant]
     Active Substance: TELMISARTAN
  7. AMLODIPINE [Concomitant]
     Active Substance: AMLODIPINE BESYLATE

REACTIONS (17)
  - Blood creatinine increased [Not Recovered/Not Resolved]
  - Limb operation [Recovered/Resolved]
  - Glomerular filtration rate decreased [Not Recovered/Not Resolved]
  - Asthenia [Unknown]
  - Urine protein/creatinine ratio decreased [Recovered/Resolved]
  - Musculoskeletal stiffness [Recovering/Resolving]
  - Creatinine urine increased [Recovered/Resolved]
  - Lymphocyte count decreased [Recovered/Resolved]
  - Creatinine urine decreased [Not Recovered/Not Resolved]
  - Sleep disorder [Unknown]
  - Restlessness [Unknown]
  - Increased appetite [Unknown]
  - White blood cell count decreased [Recovered/Resolved]
  - Tubulointerstitial nephritis [Unknown]
  - Mean cell haemoglobin concentration decreased [Unknown]
  - Platelet count decreased [Recovered/Resolved]
  - Haematocrit increased [Recovered/Resolved]

NARRATIVE: CASE EVENT DATE: 2020
